FAERS Safety Report 8401741-1 (Version None)
Quarter: 2012Q2

REPORT INFORMATION
  Report Type: 
  Country: None (occurrence: None)
  Receive Date: 20120601
  Receipt Date: 20120525
  Transmission Date: 20120825
  Serious: Yes (Other)
  Sender: FDA-Public Use
  Company Number: IE-JNJFOC-20120519455

PATIENT
  Age: 59 Year
  Sex: Male
  Weight: 100.6 kg

DRUGS (3)
  1. DICLOFENAC SODIUM [Concomitant]
     Indication: PSORIASIS
     Route: 048
  2. STELARA [Suspect]
     Route: 058
     Dates: start: 20110511
  3. STELARA [Suspect]
     Indication: PSORIASIS
     Route: 058
     Dates: start: 20110201

REACTIONS (1)
  - EPIDIDYMITIS [None]
